FAERS Safety Report 21701667 (Version 1)
Quarter: 2022Q4

REPORT INFORMATION
  Report Type: Spontaneous
  Country: DE (occurrence: DE)
  Receive Date: 20221208
  Receipt Date: 20221208
  Transmission Date: 20230112
  Serious: Yes (Hospitalization, Other)
  Sender: FDA-Public Use
  Company Number: DE-TEVA-2022-DE-2833137

PATIENT
  Age: 45 Year
  Sex: Female

DRUGS (1)
  1. HALOPERIDOL [Suspect]
     Active Substance: HALOPERIDOL
     Indication: Depression
     Route: 065

REACTIONS (4)
  - Dystonia [Recovering/Resolving]
  - Cognitive disorder [Recovering/Resolving]
  - Affective disorder [Recovering/Resolving]
  - Quality of life decreased [Recovering/Resolving]
